FAERS Safety Report 4690826-1 (Version None)
Quarter: 2005Q2

REPORT INFORMATION
  Report Type: 
  Country: None (occurrence: None)
  Receive Date: 20050610
  Receipt Date: 20050531
  Transmission Date: 20051028
  Serious: Yes (Other)
  Sender: FDA-Public Use
  Company Number: 2005083859

PATIENT
  Age: 35 Year
  Sex: Female

DRUGS (2)
  1. FELDENE [Suspect]
     Indication: DYSMENORRHOEA
     Dosage: 40 MG (AS NECESSARY)
  2. ALL OTHER THERAPEUTIC PRODUCTS [Concomitant]

REACTIONS (2)
  - CONVULSION [None]
  - HAEMANGIOMA [None]
